FAERS Safety Report 17682121 (Version 1)
Quarter: 2020Q2

REPORT INFORMATION
  Report Type: Spontaneous
  Country: US (occurrence: US)
  Receive Date: 20200418
  Receipt Date: 20200418
  Transmission Date: 20200714
  Serious: Yes (Hospitalization, Other)
  Sender: FDA-Public Use
  Company Number: US-EMCURE PHARMACEUTICALS LTD-2020-EPL-000429

PATIENT

DRUGS (7)
  1. MELOXICAM. [Interacting]
     Active Substance: MELOXICAM
     Indication: ARTHRALGIA
     Dosage: 15 MG BY MOUTH EVERY DAY
     Route: 048
     Dates: start: 20171102
  2. LAMOTRIGINE. [Concomitant]
     Active Substance: LAMOTRIGINE
     Indication: AFFECTIVE DISORDER
     Dosage: 100 MG BY MOUTH TWICE DAILY
     Route: 048
     Dates: start: 20170912
  3. ACETAMINOPHEN. [Concomitant]
     Active Substance: ACETAMINOPHEN
     Dosage: UNK
  4. FLUOXETINE [Concomitant]
     Active Substance: FLUOXETINE HYDROCHLORIDE
     Indication: AFFECTIVE DISORDER
     Dosage: 10 MG BY MOUTH DAILY
     Route: 048
     Dates: start: 20170718
  5. DESMOPRESSIN ACETATE. [Suspect]
     Active Substance: DESMOPRESSIN ACETATE
     Indication: URINARY INCONTINENCE
     Dosage: 0.2 MILLIGRAM BY MOUTH EVERY BEDTIME
     Route: 048
     Dates: start: 20171010
  6. CLOZAPINE. [Concomitant]
     Active Substance: CLOZAPINE
     Indication: SCHIZOPHRENIA
     Dosage: 225 MILLIGRAM BY MOUTH EVERY MORNING FOR A DECADE
     Route: 048
  7. CLOZAPINE. [Concomitant]
     Active Substance: CLOZAPINE
     Dosage: 400 MG BY MOUTH EVERY BEDTIME FOR A DECADE
     Route: 048

REACTIONS (3)
  - Drug interaction [Recovered/Resolved]
  - Generalised tonic-clonic seizure [Recovered/Resolved]
  - Hyponatraemia [Recovered/Resolved]

NARRATIVE: CASE EVENT DATE: 20171118
